FAERS Safety Report 8379875 (Version 2)
Quarter: 2013Q1

REPORT INFORMATION
  Report Type: Report from Study
  Country: US (occurrence: US)
  Receive Date: 20120129
  Receipt Date: 20130130
  Transmission Date: 20140127
  Serious: No
  Sender: FDA-Public Use
  Company Number: US-ABBOTT-11P-163-0879385-00

PATIENT
  Age: 56 Year
  Sex: Female

DRUGS (10)
  1. HUMIRA 40 MG/0.8 ML PEN [Suspect]
     Indication: CROHN^S DISEASE
     Dates: start: 200801
  2. CRESTOR [Concomitant]
     Indication: BLOOD CHOLESTEROL INCREASED
     Dosage: DAILY
  3. CALCIUM PLUS [Concomitant]
     Indication: MINERAL SUPPLEMENTATION
     Dosage: DAILY
  4. PRILOSEC [Concomitant]
     Indication: GASTRIC ULCER
  5. UFRO FORTE [Concomitant]
     Indication: LIVER DISORDER
     Dosage: DAILY
  6. VIT C [Concomitant]
     Indication: VITAMIN SUPPLEMENTATION
  7. AMBIEN [Concomitant]
     Indication: INSOMNIA
  8. TYLENOL #3 [Concomitant]
     Indication: ABDOMINAL PAIN
     Dosage: 1-2 TABS EVERY 4-6 HOURS
  9. TYLENOL E.S. OTC [Concomitant]
     Indication: ABDOMINAL PAIN
  10. RECLAST [Concomitant]
     Indication: BONE DENSITY DECREASED

REACTIONS (4)
  - Weight decreased [Recovering/Resolving]
  - Diarrhoea [Not Recovered/Not Resolved]
  - Injection site pain [Recovering/Resolving]
  - Abdominal pain [Recovering/Resolving]
